FAERS Safety Report 7691193-1 (Version None)
Quarter: 2011Q3

REPORT INFORMATION
  Report Type: 
  Country: None (occurrence: None)
  Receive Date: 20110818
  Receipt Date: 20110725
  Transmission Date: 20111222
  Serious: No
  Sender: FDA-Public Use
  Company Number: US-BAYER-2011-054547

PATIENT
  Age: 54 Year
  Sex: Female
  Weight: 90.703 kg

DRUGS (6)
  1. ASPIRIN [Concomitant]
  2. VITAMIN D [Concomitant]
  3. ASCORBIC ACID [Concomitant]
  4. BETASERON [Suspect]
     Dosage: 0.25 MG, QOD
     Route: 058
  5. BENICAR [Concomitant]
  6. MULTI-VITAMIN [Concomitant]

REACTIONS (2)
  - RASH GENERALISED [None]
  - MALAISE [None]
